FAERS Safety Report 9730709 (Version 7)
Quarter: 2015Q1

REPORT INFORMATION
  Report Type: Report from Study
  Country: DE (occurrence: DE)
  Receive Date: 20131205
  Receipt Date: 20150324
  Transmission Date: 20150721
  Serious: Yes (Hospitalization)
  Sender: FDA-Public Use
  Company Number: DE-ROCHE-1297099

PATIENT
  Age: 73 Year
  Sex: Female
  Weight: 78 kg

DRUGS (9)
  1. TYVERB [Suspect]
     Active Substance: LAPATINIB
     Indication: BREAST CANCER
     Route: 065
  2. CO-DIOVANE [Concomitant]
     Route: 065
     Dates: start: 200805
  3. BETAHISTIN AL [Concomitant]
     Route: 065
     Dates: start: 200806
  4. CAPECITABINE. [Suspect]
     Active Substance: CAPECITABINE
     Indication: BREAST CANCER
     Route: 065
     Dates: start: 20130910
  5. CLEXANE [Concomitant]
     Active Substance: ENOXAPARIN SODIUM
     Route: 065
     Dates: start: 20130208, end: 20130727
  6. PANTOZOL [Concomitant]
     Active Substance: PANTOPRAZOLE SODIUM
     Route: 065
     Dates: start: 200907
  7. SULPIRIDE [Concomitant]
     Active Substance: SULPIRIDE
     Route: 065
     Dates: start: 200806
  8. TRASTUZUMAB [Suspect]
     Active Substance: TRASTUZUMAB
     Indication: HER-2 POSITIVE BREAST CANCER
     Dosage: LAST DOSE PRIOR TO SAE: 29/JUL/2013
     Route: 058
     Dates: start: 20120914
  9. ASS100 [Concomitant]
     Active Substance: PENTOXIFYLLINE
     Route: 065
     Dates: start: 200806, end: 20130720

REACTIONS (1)
  - Acute kidney injury [Recovered/Resolved]

NARRATIVE: CASE EVENT DATE: 20130917
